FAERS Safety Report 20386993 (Version 1)
Quarter: 2022Q1

REPORT INFORMATION
  Report Type: Spontaneous
  Country: US (occurrence: US)
  Receive Date: 20220127
  Receipt Date: 20220127
  Transmission Date: 20220423
  Serious: No
  Sender: FDA-Public Use
  Company Number: US-ALLERGAN-2117421US

PATIENT
  Age: 67 Year
  Sex: Male

DRUGS (1)
  1. BOTOX [Suspect]
     Active Substance: ONABOTULINUMTOXINA
     Indication: Tardive dyskinesia
     Dosage: 180 UNITS, SINGLE
     Dates: start: 20210324, end: 20210324

REACTIONS (5)
  - Lichen planus [Recovering/Resolving]
  - Carpal tunnel syndrome [Recovering/Resolving]
  - Off label use [Unknown]
  - Product impurity [Unknown]
  - Product quality issue [Unknown]

NARRATIVE: CASE EVENT DATE: 20210324
